FAERS Safety Report 7319448-0 (Version None)
Quarter: 2011Q1

REPORT INFORMATION
  Report Type: 
  Country: None (occurrence: None)
  Receive Date: 20110228
  Receipt Date: 20100323
  Transmission Date: 20110831
  Serious: No
  Sender: FDA-Public Use
  Company Number: A0852269A

PATIENT
  Age: 48 Year
  Sex: Male

DRUGS (3)
  1. ANAFRANIL [Concomitant]
  2. PROZAC [Concomitant]
  3. LAMICTAL [Suspect]
     Indication: BIPOLAR DISORDER
     Dosage: 400MG PER DAY
     Route: 048

REACTIONS (2)
  - ABDOMINAL DISTENSION [None]
  - OEDEMA PERIPHERAL [None]
